FAERS Safety Report 7550432-8 (Version None)
Quarter: 2011Q2

REPORT INFORMATION
  Report Type: 
  Country: None (occurrence: None)
  Receive Date: 20110615
  Receipt Date: 20110607
  Transmission Date: 20111010
  Serious: Yes (Other)
  Sender: FDA-Public Use
  Company Number: US-PURDUE-USA-2010-0048130

PATIENT
  Sex: Male

DRUGS (2)
  1. NORCO [Concomitant]
     Indication: BREAKTHROUGH PAIN
     Dosage: UNK
  2. OXYCONTIN [Suspect]
     Indication: PAIN
     Dosage: 80 MG, QID
     Route: 048
     Dates: start: 20100917

REACTIONS (9)
  - NAUSEA [None]
  - HERNIA [None]
  - DRUG INEFFECTIVE [None]
  - HEADACHE [None]
  - DRUG EFFECT DELAYED [None]
  - PAIN [None]
  - INADEQUATE ANALGESIA [None]
  - CHEST PAIN [None]
  - DRUG EFFECT DECREASED [None]
